FAERS Safety Report 15316236 (Version 1)
Quarter: 2018Q3

REPORT INFORMATION
  Report Type: Spontaneous
  Country: US (occurrence: US)
  Receive Date: 20180816
  Receipt Date: 20180816
  Transmission Date: 20181010
  Serious: Yes (Hospitalization)
  Sender: FDA-Public Use
  Company Number: None

PATIENT
  Age: 88 Year
  Sex: Male

DRUGS (3)
  1. ZYTIGA [Suspect]
     Active Substance: ABIRATERONE ACETATE
     Indication: PROSTATE CANCER
     Route: 048
     Dates: start: 20171218
  2. VITAMIN D [Concomitant]
     Active Substance: CHOLECALCIFEROL
  3. PRESERVISION [Concomitant]
     Active Substance: MINERALS\VITAMINS

REACTIONS (1)
  - Renal disorder [None]
